FAERS Safety Report 4692020-7 (Version None)
Quarter: 2005Q2

REPORT INFORMATION
  Report Type: 
  Country: None (occurrence: None)
  Receive Date: 20050614
  Receipt Date: 20050531
  Transmission Date: 20051028
  Serious: Yes (Hospitalization)
  Sender: FDA-Public Use
  Company Number: 2005-128982-NL

PATIENT
  Age: 39 Year
  Sex: Female
  Weight: 76 kg

DRUGS (4)
  1. NUVARING [Suspect]
     Indication: CONTRACEPTION
     Dosage: VAGINAL
     Route: 067
     Dates: start: 20031101, end: 20050521
  2. LEXAPRO [Concomitant]
  3. METHOTREXATE [Concomitant]
  4. NON-STEROIDAL TOPICAL MEDICATION [Concomitant]

REACTIONS (10)
  - ABDOMINAL PAIN UPPER [None]
  - CONDITION AGGRAVATED [None]
  - DYSPEPSIA [None]
  - FATIGUE [None]
  - FOCAL NODULAR HYPERPLASIA [None]
  - HEADACHE [None]
  - HEPATIC NEOPLASM [None]
  - KERATOSIS FOLLICULAR [None]
  - THERAPY NON-RESPONDER [None]
  - WEIGHT INCREASED [None]
